FAERS Safety Report 15468128 (Version 2)
Quarter: 2018Q4

REPORT INFORMATION
  Report Type: Spontaneous
  Country: JP (occurrence: JP)
  Receive Date: 20181005
  Receipt Date: 20181005
  Transmission Date: 20190204
  Serious: Yes (Hospitalization)
  Sender: FDA-Public Use
  Company Number: JP-TEVA-2018-JP-001356J

PATIENT
  Age: 85 Year
  Sex: Female

DRUGS (2)
  1. ACTOS [Suspect]
     Active Substance: PIOGLITAZONE HYDROCHLORIDE
     Indication: PRODUCT USED FOR UNKNOWN INDICATION
     Dosage: 45 MILLIGRAM DAILY;
     Route: 048
  2. PIOGLITAZONE. [Concomitant]
     Active Substance: PIOGLITAZONE
     Dosage: 45 MILLIGRAM DAILY;
     Route: 048
     Dates: end: 20180403

REACTIONS (2)
  - Fracture [Unknown]
  - Brain natriuretic peptide increased [Unknown]
